FAERS Safety Report 8136217-2 (Version None)
Quarter: 2012Q1

REPORT INFORMATION
  Report Type: 
  Country: None (occurrence: None)
  Receive Date: 20120214
  Receipt Date: 20120210
  Transmission Date: 20120608
  Serious: Yes (Other)
  Sender: FDA-Public Use
  Company Number: US-JNJFOC-20120205761

PATIENT
  Sex: Male

DRUGS (2)
  1. BENADRYL [Suspect]
     Indication: SLEEP DISORDER THERAPY
     Dosage: TWO KAPGELS
     Route: 048
     Dates: start: 19820210
  2. BENADRYL [Suspect]
     Route: 048

REACTIONS (2)
  - DEPENDENCE [None]
  - OFF LABEL USE [None]
